FAERS Safety Report 24927167 (Version 1)
Quarter: 2025Q1

REPORT INFORMATION
  Report Type: Report from Study
  Country: ES (occurrence: ES)
  Receive Date: 20250205
  Receipt Date: 20250205
  Transmission Date: 20250409
  Serious: Yes (Other)
  Sender: ABBVIE
  Company Number: ES-JNJFOC-20250179995

PATIENT

DRUGS (7)
  1. IMBRUVICA [Suspect]
     Active Substance: IBRUTINIB
     Indication: Chronic lymphocytic leukaemia
     Route: 048
  2. METAMIZOLE [Interacting]
     Active Substance: METAMIZOLE
     Indication: Product used for unknown indication
     Route: 065
  3. EDOXABAN [Interacting]
     Active Substance: EDOXABAN
     Indication: Product used for unknown indication
     Route: 065
  4. SERTRALINE [Interacting]
     Active Substance: SERTRALINE HYDROCHLORIDE
     Indication: Product used for unknown indication
     Route: 065
  5. ESLICARBAZEPINE [Interacting]
     Active Substance: ESLICARBAZEPINE
     Indication: Product used for unknown indication
     Route: 065
  6. METFORMIN [Interacting]
     Active Substance: METFORMIN HYDROCHLORIDE
     Indication: Product used for unknown indication
     Route: 065
  7. VENETOCLAX [Suspect]
     Active Substance: VENETOCLAX
     Indication: Chronic lymphocytic leukaemia
     Route: 048

REACTIONS (21)
  - Cholestasis [Unknown]
  - Tumour lysis syndrome [Unknown]
  - Palpitations [Unknown]
  - Abdominal distension [Unknown]
  - Dizziness [Unknown]
  - Diarrhoea [Unknown]
  - Constipation [Unknown]
  - Oral candidiasis [Unknown]
  - Nausea [Unknown]
  - Hypertension [Unknown]
  - Intentional product use issue [Unknown]
  - Pyrexia [Unknown]
  - Arthralgia [Unknown]
  - Hypertransaminasaemia [Unknown]
  - Abdominal pain [Unknown]
  - Skin lesion [Unknown]
  - Drug interaction [Unknown]
  - Vomiting [Unknown]
  - Thrombocytopenia [Unknown]
  - Asthenia [Unknown]
  - Neutropenia [Unknown]
